FAERS Safety Report 5357562-X (Version None)
Quarter: 2007Q2

REPORT INFORMATION
  Report Type: 
  Country: None (occurrence: None)
  Receive Date: 20070530
  Receipt Date: 20061020
  Transmission Date: 20071010
  Serious: Yes (Hospitalization)
  Sender: FDA-Public Use
  Company Number: USA0507102354

PATIENT
  Age: 51 Year
  Sex: Male
  Weight: 114.3 kg

DRUGS (4)
  1. ZYPREXA [Suspect]
     Indication: BIPOLAR DISORDER
     Dosage: 15 MG
     Dates: start: 20030701, end: 20031101
  2. SEROQUEL [Concomitant]
  3. RISPERDAL [Concomitant]
  4. DIVALPROEX SODIUM [Concomitant]

REACTIONS (3)
  - DIABETES MELLITUS [None]
  - HYPERTENSION [None]
  - METABOLIC DISORDER [None]
